FAERS Safety Report 9616385 (Version 2)
Quarter: 2013Q4

REPORT INFORMATION
  Report Type: Spontaneous
  Country: US (occurrence: US)
  Receive Date: 20131011
  Receipt Date: 20131011
  Transmission Date: 20140711
  Serious: No
  Sender: FDA-Public Use
  Company Number: US-PURDUE-USA-2013-0099507

PATIENT
  Age: 44 Year
  Sex: Female

DRUGS (3)
  1. BUTRANS [Suspect]
     Indication: BACK PAIN
     Dosage: 5 MCG/HR, UNK
     Route: 062
  2. BUTRANS [Suspect]
     Dosage: 5 MCG/HR, UNK
     Route: 062
     Dates: start: 20130214, end: 20130302
  3. BUTRANS [Suspect]
     Dosage: 10 MCG/HR, UNK
     Route: 062
     Dates: start: 20130303

REACTIONS (5)
  - Drug ineffective [Not Recovered/Not Resolved]
  - Inadequate analgesia [Unknown]
  - Product adhesion issue [Unknown]
  - Product packaging quantity issue [Unknown]
  - Product packaging issue [Unknown]
